FAERS Safety Report 6102694-1 (Version None)
Quarter: 2009Q1

REPORT INFORMATION
  Report Type: 
  Country: None (occurrence: None)
  Receive Date: 20090304
  Receipt Date: 20070322
  Transmission Date: 20090719
  Serious: Yes (Life-Threatening)
  Sender: FDA-Public Use
  Company Number: B0463070A

PATIENT
  Age: 68 Year
  Sex: Male

DRUGS (6)
  1. REQUIP [Suspect]
     Indication: PARKINSON'S DISEASE
     Dosage: 3MG THREE TIMES PER DAY
     Route: 048
     Dates: start: 20021007, end: 20070117
  2. ATENOLOL [Concomitant]
     Dosage: 50MG PER DAY
     Route: 048
  3. PLAVIX [Concomitant]
     Dosage: 1UNIT PER DAY
     Route: 048
  4. CRESTOR [Concomitant]
     Dosage: 10MG PER DAY
     Route: 048
  5. COVERSYL [Concomitant]
     Dosage: 6MG PER DAY
     Route: 048
  6. KARDEGIC [Concomitant]
     Dosage: 75MG PER DAY
     Route: 048

REACTIONS (2)
  - INSOMNIA [None]
  - SUDDEN ONSET OF SLEEP [None]
